FAERS Safety Report 18948366 (Version 1)
Quarter: 2021Q1

REPORT INFORMATION
  Report Type: Spontaneous
  Country: US (occurrence: US)
  Receive Date: 20210226
  Receipt Date: 20210226
  Transmission Date: 20210420
  Serious: Yes (Other)
  Sender: FDA-Public Use
  Company Number: US-ROCHE-2570392

PATIENT
  Age: 23 Year
  Sex: Female

DRUGS (4)
  1. XOLAIR [Suspect]
     Active Substance: OMALIZUMAB
     Route: 058
  2. BENADRYL [Concomitant]
     Active Substance: DIPHENHYDRAMINE HYDROCHLORIDE
  3. XOLAIR [Suspect]
     Active Substance: OMALIZUMAB
     Indication: CHRONIC SPONTANEOUS URTICARIA
     Dosage: 2 INJECTIONS RECEIVED (TOTAL OF 300 MG) ;ONGOING: NO
     Route: 058
     Dates: start: 20200210, end: 20200213
  4. PEPCID [Concomitant]
     Active Substance: FAMOTIDINE

REACTIONS (3)
  - Pharyngeal disorder [Unknown]
  - Dyspnoea [Unknown]
  - Oedema [Not Recovered/Not Resolved]

NARRATIVE: CASE EVENT DATE: 20200213
